FAERS Safety Report 6149839-5 (Version None)
Quarter: 2009Q2

REPORT INFORMATION
  Report Type: 
  Country: None (occurrence: None)
  Receive Date: 20090409
  Receipt Date: 20090402
  Transmission Date: 20091009
  Serious: Yes (Other)
  Sender: FDA-Public Use
  Company Number: US-NOVOPROD-285954

PATIENT
  Sex: Female
  Weight: 71.655 kg

DRUGS (4)
  1. VAGIFEM [Suspect]
     Indication: VULVOVAGINAL PAIN
     Dosage: UNK, BIW
     Route: 067
     Dates: start: 20080301
  2. METOPROLOL [Concomitant]
     Indication: HYPERTENSION
     Dosage: 50 MG, BID
     Dates: start: 20010101
  3. ASPIRIN [Concomitant]
     Indication: CARDIAC DISORDER
     Dosage: 81 MG, UNK
     Dates: start: 20030101
  4. IBUPROFEN [Concomitant]
     Indication: ARTHRITIS
     Dosage: 600 MG, PRN

REACTIONS (1)
  - DIABETES MELLITUS [None]
